FAERS Safety Report 6575621-0 (Version None)
Quarter: 2010Q1

REPORT INFORMATION
  Report Type: 
  Country: None (occurrence: None)
  Receive Date: 20100209
  Receipt Date: 20100205
  Transmission Date: 20100710
  Serious: Yes (Hospitalization)
  Sender: FDA-Public Use
  Company Number: B0631527A

PATIENT
  Sex: Male

DRUGS (6)
  1. AUGMENTIN [Suspect]
     Dosage: 3G PER DAY
     Route: 048
     Dates: start: 20100106, end: 20100112
  2. IBUPROFENE [Suspect]
     Dosage: 1UNIT TWICE PER DAY
     Route: 048
     Dates: start: 20100106, end: 20100112
  3. TAMIFLU [Suspect]
     Dosage: 150MG PER DAY
     Route: 048
     Dates: start: 20100106, end: 20100111
  4. DOLIPRANE [Suspect]
     Route: 048
     Dates: start: 20100106, end: 20100112
  5. BRONCHOKOD [Suspect]
     Route: 048
     Dates: start: 20100106, end: 20100112
  6. RHINOFLUIMUCIL [Suspect]
     Route: 045
     Dates: start: 20100106, end: 20100112

REACTIONS (6)
  - ALVEOLAR PROTEINOSIS [None]
  - HEPATOCELLULAR INJURY [None]
  - JAUNDICE [None]
  - OFF LABEL USE [None]
  - RENAL FAILURE [None]
  - RESPIRATORY DISORDER [None]
